FAERS Safety Report 19307888 (Version 2)
Quarter: 2021Q4

REPORT INFORMATION
  Report Type: Spontaneous
  Country: CA (occurrence: CA)
  Receive Date: 20210526
  Receipt Date: 20211201
  Transmission Date: 20220303
  Serious: Yes (Hospitalization, Other)
  Sender: FDA-Public Use
  Company Number: CA-LUPIN PHARMACEUTICALS INC.-2021-07831

PATIENT
  Sex: Female

DRUGS (3)
  1. NADOLOL [Suspect]
     Active Substance: NADOLOL
     Indication: Haemangioma
     Dosage: 2 MILLIGRAM/KILOGRAM, QD SUSPENSION
     Route: 065
  2. NADOLOL [Suspect]
     Active Substance: NADOLOL
     Dosage: 4 MILLIGRAM/KILOGRAM, QD SUSPENSION
     Route: 065
  3. NADOLOL [Suspect]
     Active Substance: NADOLOL
     Dosage: UNK- DECREASED-SUSPENSION
     Route: 065

REACTIONS (2)
  - Bradycardia [Recovered/Resolved]
  - Off label use [Unknown]
